FAERS Safety Report 6681402-X (Version None)
Quarter: 2010Q2

REPORT INFORMATION
  Report Type: 
  Country: None (occurrence: None)
  Receive Date: 20100414
  Receipt Date: 20100408
  Transmission Date: 20101027
  Serious: Yes (Hospitalization)
  Sender: FDA-Public Use
  Company Number: B0645697A

PATIENT
  Sex: Female

DRUGS (12)
  1. VALTREX [Suspect]
     Indication: HERPES ZOSTER
     Dosage: 3000MG PER DAY
     Route: 048
     Dates: start: 20100329, end: 20100402
  2. ALOSENN [Concomitant]
     Route: 048
  3. ACTONEL [Concomitant]
     Route: 048
  4. CETAPRIL [Concomitant]
     Route: 048
  5. CEREKINON [Concomitant]
     Route: 048
  6. ITOROL [Concomitant]
     Route: 048
  7. FAMOTIDINE [Concomitant]
     Route: 048
  8. ATELEC [Concomitant]
     Route: 048
  9. PANALDINE [Concomitant]
     Route: 048
  10. PAXIL [Concomitant]
     Route: 048
  11. MEVALOTIN [Concomitant]
     Route: 048
  12. AMOBAN [Concomitant]
     Route: 048

REACTIONS (4)
  - ASTHENIA [None]
  - DECREASED APPETITE [None]
  - NAUSEA [None]
  - RENAL DISORDER [None]
